FAERS Safety Report 14736991 (Version 1)
Quarter: 2018Q2

REPORT INFORMATION
  Report Type: Report from Study
  Country: US (occurrence: US)
  Receive Date: 20180409
  Receipt Date: 20180409
  Transmission Date: 20180711
  Serious: No
  Sender: FDA-Public Use
  Company Number: US-AMGEN-USASL2018008222

PATIENT

DRUGS (1)
  1. PROLIA [Suspect]
     Active Substance: DENOSUMAB
     Indication: OSTEOMALACIA
     Dosage: 60 MG, Q6MO
     Route: 065
     Dates: start: 20170801

REACTIONS (2)
  - Off label use [Unknown]
  - Ill-defined disorder [Unknown]
